FAERS Safety Report 12916209 (Version 1)
Quarter: 2016Q4

REPORT INFORMATION
  Report Type: Spontaneous
  Country: US (occurrence: US)
  Receive Date: 20161105
  Receipt Date: 20161105
  Transmission Date: 20170207
  Serious: Yes (Disabling)
  Sender: FDA-Public Use
  Company Number: None

PATIENT
  Age: 47 Year
  Sex: Female
  Weight: 62.2 kg

DRUGS (5)
  1. ONE-A-DAY WOMEN^S MULTIVITAMIN [Concomitant]
  2. CALCIUM+D SUPPLEMENT [Concomitant]
  3. PRESERVISION [Concomitant]
     Active Substance: MINERALS\VITAMINS
  4. LEVOTHYROXINE. [Concomitant]
     Active Substance: LEVOTHYROXINE
  5. MIRENA [Suspect]
     Active Substance: LEVONORGESTREL

REACTIONS (1)
  - Retinal artery occlusion [None]

NARRATIVE: CASE EVENT DATE: 20160926
